FAERS Safety Report 11292230 (Version 1)
Quarter: 2015Q3

REPORT INFORMATION
  Report Type: Spontaneous
  Country: US (occurrence: None)
  Receive Date: 20150721
  Receipt Date: 20150721
  Transmission Date: 20151125
  Serious: Yes (Hospitalization, Other)
  Sender: FDA-Public Use
  Company Number: None

PATIENT

DRUGS (1)
  1. MULTAQ [Suspect]
     Active Substance: DRONEDARONE
     Indication: ATRIAL FIBRILLATION
     Route: 048
     Dates: start: 20090731, end: 20150720

REACTIONS (5)
  - Abasia [None]
  - Pneumonia [None]
  - Dyspnoea [None]
  - Lung disorder [None]
  - Quality of life decreased [None]

NARRATIVE: CASE EVENT DATE: 20150605
